FAERS Safety Report 21564586 (Version 1)
Quarter: 2022Q4

REPORT INFORMATION
  Report Type: Spontaneous
  Country: US (occurrence: US)
  Receive Date: 20221108
  Receipt Date: 20221108
  Transmission Date: 20230113
  Serious: Yes (Hospitalization)
  Sender: FDA-Public Use
  Company Number: US-SUN PHARMACEUTICAL INDUSTRIES LTD-2022R1-362393

PATIENT
  Age: 53 Year
  Sex: Female

DRUGS (1)
  1. SOTALOL [Suspect]
     Active Substance: SOTALOL
     Indication: Product used for unknown indication
     Dosage: UNK FIFTEEN 80MG
     Route: 065

REACTIONS (4)
  - Intentional overdose [Unknown]
  - Sinus bradycardia [Recovered/Resolved]
  - Somnolence [Recovering/Resolving]
  - Hypotension [Recovered/Resolved]
